FAERS Safety Report 10728124 (Version 1)
Quarter: 2015Q1

REPORT INFORMATION
  Report Type: Spontaneous
  Country: CH (occurrence: CH)
  Receive Date: 20150121
  Receipt Date: 20150121
  Transmission Date: 20150721
  Serious: Yes (Other)
  Sender: FDA-Public Use
  Company Number: CH-ABBVIE-15P-151-1333557-00

PATIENT
  Age: 61 Year
  Sex: Male
  Weight: 69 kg

DRUGS (6)
  1. VOLTAREN [Suspect]
     Active Substance: DICLOFENAC SODIUM
     Indication: PRODUCT USED FOR UNKNOWN INDICATION
     Route: 061
  2. NORVIR [Suspect]
     Active Substance: RITONAVIR
     Indication: HIV INFECTION
     Route: 048
     Dates: start: 20090810
  3. OPTIFEN [Suspect]
     Active Substance: IBUPROFEN
     Indication: PRODUCT USED FOR UNKNOWN INDICATION
     Route: 048
     Dates: start: 2010
  4. REYATAZ [Suspect]
     Active Substance: ATAZANAVIR SULFATE
     Indication: HIV INFECTION
     Route: 048
     Dates: start: 20090810
  5. KIVEXA [Suspect]
     Active Substance: ABACAVIR SULFATE\LAMIVUDINE
     Indication: HIV INFECTION
     Route: 048
     Dates: start: 20090810
  6. INFLAMAC [Suspect]
     Active Substance: DICLOFENAC SODIUM
     Indication: PRODUCT USED FOR UNKNOWN INDICATION
     Route: 061

REACTIONS (7)
  - Arteriosclerosis [Unknown]
  - Interstitial lung disease [Unknown]
  - Cryoglobulinaemia [Unknown]
  - Renal tubular atrophy [Unknown]
  - Tubulointerstitial nephritis [Not Recovered/Not Resolved]
  - Glomerulonephritis [Unknown]
  - Arterial fibrosis [Unknown]

NARRATIVE: CASE EVENT DATE: 20141217
